FAERS Safety Report 8455411-4 (Version None)
Quarter: 2012Q2

REPORT INFORMATION
  Report Type: 
  Country: None (occurrence: None)
  Receive Date: 20120614
  Receipt Date: 20120530
  Transmission Date: 20120825
  Serious: Yes (Life-Threatening, Other)
  Sender: FDA-Public Use
  Company Number: MC201200365

PATIENT

DRUGS (3)
  1. CLEVIPREX [Suspect]
     Indication: BLOOD PRESSURE INCREASED
  2. CALCIUM [Concomitant]
  3. MAGNESIUM SULFATE [Concomitant]

REACTIONS (3)
  - BLOOD PRESSURE DECREASED [None]
  - CARDIO-RESPIRATORY ARREST [None]
  - HYPERSENSITIVITY [None]
